FAERS Safety Report 19602263 (Version 1)
Quarter: 2021Q3

REPORT INFORMATION
  Report Type: Spontaneous
  Country: CA (occurrence: CA)
  Receive Date: 20210724
  Receipt Date: 20210724
  Transmission Date: 20211014
  Serious: Yes (Other)
  Sender: FDA-Public Use
  Company Number: CA-ROCHE-2876344

PATIENT
  Sex: Female

DRUGS (17)
  1. PREDNISONE. [Concomitant]
     Active Substance: PREDNISONE
     Dosage: DOSAGE FORM NOT SPECIFIED
  2. DULOXETINE HYDROCHLORIDE. [Concomitant]
     Active Substance: DULOXETINE HYDROCHLORIDE
     Route: 065
  3. FOLIC ACID. [Concomitant]
     Active Substance: FOLIC ACID
     Dosage: DOSAGE FORM  NOT SPECIFIED
  4. SULFASALAZINE. [Concomitant]
     Active Substance: SULFASALAZINE
     Dosage: DOSAGE FORM NOT SPECIFIED
  5. RITUXIMAB. [Suspect]
     Active Substance: RITUXIMAB
     Indication: RHEUMATOID ARTHRITIS
     Route: 042
  6. JARDIANCE [Concomitant]
     Active Substance: EMPAGLIFLOZIN
  7. LORATADINE. [Concomitant]
     Active Substance: LORATADINE
     Dosage: DOSAGE FORM NOT SPECIFIED
     Route: 065
  8. PREGABALIN. [Concomitant]
     Active Substance: PREGABALIN
  9. ROSUVASTATIN. [Concomitant]
     Active Substance: ROSUVASTATIN
     Dosage: DOSAGE FORM NOT SPECIFIED
     Route: 058
  10. LEVEMIR [Concomitant]
     Active Substance: INSULIN DETEMIR
     Route: 058
  11. RABEPRAZOLE [Concomitant]
     Active Substance: RABEPRAZOLE
  12. HUMALOG [Concomitant]
     Active Substance: INSULIN LISPRO
  13. HYDROXYCHLOROQUINE SULFATE. [Concomitant]
     Active Substance: HYDROXYCHLOROQUINE SULFATE
  14. RAMIPRIL. [Concomitant]
     Active Substance: RAMIPRIL
     Dosage: DOSAGE FORM NOT SPECIFIED
     Route: 065
  15. METHOTREXATE. [Concomitant]
     Active Substance: METHOTREXATE
     Dosage: DOSAGE FORM NOT SPECIFIED
     Route: 037
  16. ALENDRONATE SODIUM. [Concomitant]
     Active Substance: ALENDRONATE SODIUM
  17. METFORMIN [Concomitant]
     Active Substance: METFORMIN HYDROCHLORIDE

REACTIONS (1)
  - Acute respiratory distress syndrome [Unknown]
